FAERS Safety Report 7470437-5 (Version None)
Quarter: 2011Q2

REPORT INFORMATION
  Report Type: 
  Country: None (occurrence: None)
  Receive Date: 20110510
  Receipt Date: 20110406
  Transmission Date: 20111010
  Serious: No
  Sender: FDA-Public Use
  Company Number: US-BAYER-2011-031033

PATIENT
  Age: 82 Year
  Sex: Female
  Weight: 68.027 kg

DRUGS (1)
  1. ALEVE (CAPLET) [Suspect]
     Indication: SCIATICA
     Dosage: 440 MG, QD, BOTTLE COUNT 100S
     Route: 048
     Dates: start: 20110406

REACTIONS (1)
  - SCIATICA [None]
